FAERS Safety Report 7811906-5 (Version None)
Quarter: 2011Q4

REPORT INFORMATION
  Report Type: 
  Country: None (occurrence: None)
  Receive Date: 20111013
  Receipt Date: 20111005
  Transmission Date: 20120403
  Serious: Yes (Hospitalization, Other)
  Sender: FDA-Public Use
  Company Number: PHHY2011MX88872

PATIENT
  Sex: Female

DRUGS (5)
  1. ZOMETA [Suspect]
     Indication: BONE NEOPLASM MALIGNANT
     Dosage: 4 MG/ 5 ML
     Dates: start: 20110907, end: 20110914
  2. DICLOFENAC [Concomitant]
     Indication: PAIN
  3. PRAVAXAR [Concomitant]
     Indication: INFECTION
     Dosage: 110 MG, UNK
  4. TRAMADOL HCL [Concomitant]
     Indication: PAIN
  5. NOVASIPINO [Concomitant]
     Indication: HYPERTENSION
     Dosage: 5 MG,  DAY FOR 2 YEARS

REACTIONS (2)
  - FEMUR FRACTURE [None]
  - LOWER LIMB FRACTURE [None]
